FAERS Safety Report 5889290-6 (Version None)
Quarter: 2008Q3

REPORT INFORMATION
  Report Type: 
  Country: None (occurrence: None)
  Receive Date: 20080919
  Receipt Date: 20080916
  Transmission Date: 20090109
  Serious: Yes (Other)
  Sender: FDA-Public Use
  Company Number: GB-WYE-G02172008

PATIENT
  Sex: Male

DRUGS (5)
  1. TYGACIL [Suspect]
     Dosage: UNKNOWN
     Dates: start: 20080908, end: 20080913
  2. OMEPRAZOLE [Concomitant]
     Dosage: UNKNOWN
  3. TOBRAMYCIN [Concomitant]
     Dosage: UNKNOWN
     Route: 042
  4. AZITHROMYCIN [Concomitant]
     Dosage: UNKNOWN
  5. THEOPHYLLINE [Concomitant]
     Dosage: UNKNOWN

REACTIONS (3)
  - BLOOD ALBUMIN DECREASED [None]
  - CONDITION AGGRAVATED [None]
  - OEDEMA [None]
